FAERS Safety Report 8729036 (Version 6)
Quarter: 2015Q1

REPORT INFORMATION
  Report Type: Report from Study
  Country: JP (occurrence: JP)
  Receive Date: 20120815
  Receipt Date: 20150206
  Transmission Date: 20150721
  Serious: Yes (Hospitalization)
  Sender: FDA-Public Use
  Company Number: JP-PFIZER INC-2012185441

PATIENT
  Age: 70 Year
  Sex: Female
  Weight: 55 kg

DRUGS (32)
  1. LIPITOR [Suspect]
     Active Substance: ATORVASTATIN CALCIUM
     Indication: HYPERLIPIDAEMIA
     Dosage: 5 MG, 1X/DAY
     Route: 048
     Dates: start: 20120713
  2. RIVOTRIL [Suspect]
     Active Substance: CLONAZEPAM
     Dosage: 1 MG, 1X/DAY
     Route: 048
     Dates: start: 20110613
  3. DOPACOL [Suspect]
     Active Substance: CARBIDOPA\LEVODOPA
     Indication: PARKINSON^S DISEASE
     Dosage: 50 MG, 4X/DAY
     Route: 048
     Dates: start: 20090525, end: 20090712
  4. TIZANIN [Suspect]
     Active Substance: TIZANIDINE
     Indication: BACK PAIN
  5. SYMMETREL [Suspect]
     Active Substance: AMANTADINE HYDROCHLORIDE
     Indication: PARKINSON^S DISEASE
     Dosage: 100 MG, 2X/DAY
     Route: 048
     Dates: start: 20090226, end: 20100609
  6. EURODIN [Suspect]
     Active Substance: ESTAZOLAM
     Dosage: 1 MG, 1X/DAY
     Route: 048
     Dates: start: 20121211
  7. SODIUM PICOSULFATE [Suspect]
     Active Substance: SODIUM PICOSULFATE
     Indication: CONSTIPATION
     Dosage: UNK
     Route: 048
     Dates: start: 20121016
  8. RIVOTRIL [Suspect]
     Active Substance: CLONAZEPAM
     Dosage: 0.5 MG, 2X/DAY
     Route: 048
     Dates: start: 20100315, end: 20101114
  9. MAGMITT [Suspect]
     Active Substance: MAGNESIUM OXIDE
     Dosage: 1320 MG, 1X/DAY
     Route: 048
     Dates: start: 20121016
  10. ADOFEED [Suspect]
     Active Substance: FLURBIPROFEN
     Indication: BACK PAIN
     Dosage: UNK
     Route: 048
     Dates: start: 20080619
  11. SYMMETREL [Suspect]
     Active Substance: AMANTADINE HYDROCHLORIDE
     Dosage: 50 MG, 2X/DAY
     Route: 048
     Dates: start: 20100809
  12. BROTIZOLAM [Suspect]
     Active Substance: BROTIZOLAM
     Indication: INSOMNIA
     Dosage: 0.25 MG, 1X/DAY
     Route: 048
     Dates: start: 20110414
  13. DONEPEZIL HCL [Suspect]
     Active Substance: DONEPEZIL HYDROCHLORIDE
     Indication: PARKINSON^S DISEASE
     Dosage: 3 MG, 1 IN 1 D
     Route: 048
     Dates: start: 20111012, end: 20111019
  14. GASMOTIN [Suspect]
     Active Substance: MOSAPRIDE CITRATE
     Indication: CHRONIC GASTRITIS
     Dosage: 5 MG, 3X/DAY
     Route: 048
  15. MAGMITT [Suspect]
     Active Substance: MAGNESIUM OXIDE
     Dosage: 1650 MG, 1X/DAY
     Route: 048
     Dates: start: 20110411, end: 20121015
  16. DOPACOL [Suspect]
     Active Substance: CARBIDOPA\LEVODOPA
     Dosage: 300 MG, 1X/DAY
     Route: 048
     Dates: start: 20090713, end: 20110307
  17. DOPACOL [Suspect]
     Active Substance: CARBIDOPA\LEVODOPA
     Dosage: 100 MG, 4X/DAY
     Route: 048
     Dates: start: 20110414, end: 20120125
  18. TIZANIN [Suspect]
     Active Substance: TIZANIDINE
     Indication: PARKINSON^S DISEASE
     Dosage: 1 MG, 3X/DAY
     Route: 048
     Dates: start: 20071220
  19. SYMMETREL [Suspect]
     Active Substance: AMANTADINE HYDROCHLORIDE
     Dosage: 150 MG, 1X/DAY
     Route: 048
     Dates: start: 20100610, end: 20100808
  20. RIVOTRIL [Suspect]
     Active Substance: CLONAZEPAM
     Indication: INSOMNIA
     Dosage: 0.5 MG, 1X/DAY
     Route: 048
     Dates: start: 20070709, end: 20100314
  21. GASMET [Suspect]
     Active Substance: FAMOTIDINE
     Indication: CHRONIC GASTRITIS
     Dosage: 20 MG, 1X/DAY
     Route: 048
     Dates: start: 20110506
  22. EURODIN [Suspect]
     Active Substance: ESTAZOLAM
     Indication: INSOMNIA
     Dosage: 2 MG, 1X/DAY
     Route: 048
     Dates: start: 20120918, end: 20121210
  23. GASMOTIN [Suspect]
     Active Substance: MOSAPRIDE CITRATE
     Indication: PROPHYLAXIS
     Dosage: 5 MG, 2X/DAY
     Route: 048
  24. MAGMITT [Suspect]
     Active Substance: MAGNESIUM OXIDE
     Indication: CONSTIPATION
     Dosage: 660 MG, 3X/DAY
     Route: 048
     Dates: start: 20070710, end: 20110410
  25. DOPACOL [Suspect]
     Active Substance: CARBIDOPA\LEVODOPA
     Dosage: 350 MG, 1X/DAY
     Route: 048
     Dates: start: 20110308, end: 20110413
  26. HALFDIGOXIN [Suspect]
     Active Substance: DIGOXIN
     Indication: VENTRICULAR EXTRASYSTOLES
     Dosage: 0.125 MG, 1X/DAY
     Route: 048
     Dates: start: 20120315
  27. LAXOBERON [Suspect]
     Active Substance: SODIUM PICOSULFATE
     Indication: CONSTIPATION
     Dosage: UNK
     Route: 048
     Dates: start: 20120705
  28. DONEPEZIL HCL [Suspect]
     Active Substance: DONEPEZIL HYDROCHLORIDE
     Dosage: 5 MG, 1 IN 1 D
     Route: 048
     Dates: start: 20111020
  29. CABASER [Suspect]
     Active Substance: CABERGOLINE
     Indication: PARKINSON^S DISEASE
     Dosage: 0.5 MG, 1X/DAY
     Route: 048
     Dates: start: 20111117
  30. RIVOTRIL [Suspect]
     Active Substance: CLONAZEPAM
     Dosage: 0.5 MG, 1X/DAY
     Route: 048
     Dates: start: 20101115, end: 20110612
  31. DOPACOL [Suspect]
     Active Substance: CARBIDOPA\LEVODOPA
     Dosage: 550 MG, 1X/DAY
     Route: 048
     Dates: start: 20120126
  32. COMTAN [Suspect]
     Active Substance: ENTACAPONE
     Indication: PARKINSON^S DISEASE
     Dosage: 100 MG, 3X/DAY
     Route: 048
     Dates: start: 20090615

REACTIONS (2)
  - Coronary artery disease [Not Recovered/Not Resolved]
  - Deafness neurosensory [Recovering/Resolving]

NARRATIVE: CASE EVENT DATE: 20120702
